FAERS Safety Report 4884867-9 (Version None)
Quarter: 2006Q1

REPORT INFORMATION
  Report Type: 
  Country: None (occurrence: None)
  Receive Date: 20060119
  Receipt Date: 20060112
  Transmission Date: 20060701
  Serious: Yes (Life-Threatening, Hospitalization)
  Sender: FDA-Public Use
  Company Number: FI-GLAXOSMITHKLINE-B0406416A

PATIENT
  Age: 68 Year
  Sex: Male

DRUGS (7)
  1. FONDAPARINUX [Suspect]
     Dosage: 2.5MG PER DAY
     Route: 058
     Dates: start: 20041006, end: 20041010
  2. ASPIRIN [Concomitant]
  3. NITROGLYCERIN [Concomitant]
  4. SIMVASTATIN [Concomitant]
  5. METOCLOPRAMIDE [Concomitant]
  6. ACETYLCYSTEINE [Concomitant]
  7. DIAZEPAM [Concomitant]

REACTIONS (1)
  - CORONARY ARTERY THROMBOSIS [None]
